FAERS Safety Report 23868225 (Version 1)
Quarter: 2024Q2

REPORT INFORMATION
  Report Type: Spontaneous
  Country: US (occurrence: US)
  Receive Date: 20240517
  Receipt Date: 20240517
  Transmission Date: 20240715
  Serious: Yes (Death, Life-Threatening, Hospitalization, Other)
  Sender: FDA-Public Use
  Company Number: US-PFIZER INC-202400108670

PATIENT
  Age: 68 Year
  Sex: Male

DRUGS (20)
  1. AZITHROMYCIN [Suspect]
     Active Substance: AZITHROMYCIN
     Indication: Rhodococcus infection
     Dosage: UNK
  2. AZITHROMYCIN [Suspect]
     Active Substance: AZITHROMYCIN
     Indication: COVID-19
  3. AZITHROMYCIN [Suspect]
     Active Substance: AZITHROMYCIN
     Indication: Inflammation
  4. AZITHROMYCIN [Suspect]
     Active Substance: AZITHROMYCIN
     Indication: Necrosis
  5. VANCOMYCIN HYDROCHLORIDE [Suspect]
     Active Substance: VANCOMYCIN HYDROCHLORIDE
     Indication: Rhodococcus infection
     Dosage: UNK
  6. VANCOMYCIN HYDROCHLORIDE [Suspect]
     Active Substance: VANCOMYCIN HYDROCHLORIDE
     Indication: COVID-19
     Dosage: TWO-WEEK HOME COURSE
  7. PIPERACILLIN SODIUM\TAZOBACTAM SODIUM [Suspect]
     Active Substance: PIPERACILLIN SODIUM\TAZOBACTAM SODIUM
     Indication: Rhodococcus infection
     Dosage: UNK
  8. PIPERACILLIN SODIUM\TAZOBACTAM SODIUM [Suspect]
     Active Substance: PIPERACILLIN SODIUM\TAZOBACTAM SODIUM
     Indication: COVID-19
  9. SULFAMETHOXAZOLE\TRIMETHOPRIM [Suspect]
     Active Substance: SULFAMETHOXAZOLE\TRIMETHOPRIM
     Indication: Rhodococcus infection
     Dosage: APPROXIMATELY A MONTH
  10. SULFAMETHOXAZOLE\TRIMETHOPRIM [Suspect]
     Active Substance: SULFAMETHOXAZOLE\TRIMETHOPRIM
     Indication: COVID-19
  11. SULFAMETHOXAZOLE\TRIMETHOPRIM [Suspect]
     Active Substance: SULFAMETHOXAZOLE\TRIMETHOPRIM
     Indication: Inflammation
  12. SULFAMETHOXAZOLE\TRIMETHOPRIM [Suspect]
     Active Substance: SULFAMETHOXAZOLE\TRIMETHOPRIM
     Indication: Necrosis
  13. IMIPENEM [Suspect]
     Active Substance: IMIPENEM
     Indication: Rhodococcus infection
     Dosage: UNK
  14. IMIPENEM [Suspect]
     Active Substance: IMIPENEM
     Indication: COVID-19
  15. RIFAMPIN [Suspect]
     Active Substance: RIFAMPIN
     Indication: Rhodococcus infection
     Dosage: UNK
  16. RIFAMPIN [Suspect]
     Active Substance: RIFAMPIN
     Indication: COVID-19
  17. MOXIFLOXACIN [Suspect]
     Active Substance: MOXIFLOXACIN
     Indication: Rhodococcus infection
     Dosage: UNK
  18. MOXIFLOXACIN [Suspect]
     Active Substance: MOXIFLOXACIN
     Indication: Neutropenia
  19. MOXIFLOXACIN [Suspect]
     Active Substance: MOXIFLOXACIN
     Indication: Leukopenia
  20. MINOCYCLINE [Suspect]
     Active Substance: MINOCYCLINE HYDROCHLORIDE
     Indication: Rhodococcus infection
     Dosage: UNK

REACTIONS (2)
  - Off label use [Fatal]
  - Drug ineffective for unapproved indication [Fatal]
